FAERS Safety Report 6217404-7 (Version None)
Quarter: 2009Q2

REPORT INFORMATION
  Report Type: 
  Country: None (occurrence: None)
  Receive Date: 20090608
  Receipt Date: 20080905
  Transmission Date: 20091009
  Serious: No
  Sender: FDA-Public Use
  Company Number: A0747327A

PATIENT
  Age: 55 Year
  Sex: Female

DRUGS (1)
  1. WELLBUTRIN [Suspect]
     Indication: DEPRESSION
     Dosage: 75MG PER DAY
     Route: 048
     Dates: start: 20080902, end: 20080903

REACTIONS (1)
  - NAUSEA [None]
